FAERS Safety Report 8293515-X (Version None)
Quarter: 2012Q2

REPORT INFORMATION
  Report Type: 
  Country: None (occurrence: None)
  Receive Date: 20120418
  Receipt Date: 20120411
  Transmission Date: 20120825
  Serious: Yes (Other)
  Sender: FDA-Public Use
  Company Number: PL-AMGEN-POLSP2012023039

PATIENT
  Sex: Female

DRUGS (1)
  1. PROLIA [Suspect]
     Indication: PRODUCT USED FOR UNKNOWN INDICATION

REACTIONS (5)
  - LYMPHADENOPATHY [None]
  - THYROID NEOPLASM [None]
  - BREAST MASS [None]
  - OVARIAN CYST [None]
  - ENDOMETRIAL HYPERTROPHY [None]
